FAERS Safety Report 9359925 (Version 1)
Quarter: 2013Q2

REPORT INFORMATION
  Report Type: Spontaneous
  Country: US (occurrence: US)
  Receive Date: 20130621
  Receipt Date: 20130621
  Transmission Date: 20140414
  Serious: Yes (Other)
  Sender: FDA-Public Use
  Company Number: US-ASTRAZENECA-2013SE46500

PATIENT
  Sex: Female

DRUGS (6)
  1. NEXIUM [Suspect]
     Indication: OESOPHAGEAL STENOSIS
     Route: 048
  2. NEXIUM [Suspect]
     Indication: OESOPHAGEAL STENOSIS
     Route: 048
     Dates: start: 20130613
  3. METOPROLOL [Suspect]
     Route: 065
  4. OMEPRAZOLE [Suspect]
     Route: 048
     Dates: start: 2011
  5. WARFARIN [Concomitant]
     Dosage: UNK
  6. ESTRADIOL [Concomitant]
     Dosage: UNK

REACTIONS (6)
  - Cardiac valve disease [Unknown]
  - Atrial fibrillation [Unknown]
  - Bone disorder [Unknown]
  - Oesophageal oedema [Unknown]
  - Osteopenia [Unknown]
  - Off label use [Unknown]
